FAERS Safety Report 6036621-2 (Version None)
Quarter: 2009Q1

REPORT INFORMATION
  Report Type: 
  Country: None (occurrence: None)
  Receive Date: 20090114
  Receipt Date: 20090108
  Transmission Date: 20090719
  Serious: Yes (Hospitalization)
  Sender: FDA-Public Use
  Company Number: JP-NOVOPROD-282691

PATIENT
  Age: 70 Year
  Sex: Male

DRUGS (1)
  1. INNOLET 30R CHU [Suspect]
     Indication: DIABETES MELLITUS
     Dosage: NOT REPORTED
     Route: 058

REACTIONS (8)
  - ALANINE AMINOTRANSFERASE INCREASED [None]
  - ASPARTATE AMINOTRANSFERASE INCREASED [None]
  - CONDITION AGGRAVATED [None]
  - DIABETIC KETOACIDOSIS [None]
  - GAMMA-GLUTAMYLTRANSFERASE INCREASED [None]
  - HEPATIC FUNCTION ABNORMAL [None]
  - HEPATOMEGALY [None]
  - HYPOGLYCAEMIA UNAWARENESS [None]
